FAERS Safety Report 8605008 (Version 3)
Quarter: 2013Q3

REPORT INFORMATION
  Report Type: Spontaneous
  Country: GB (occurrence: None)
  Receive Date: 20120529
  Receipt Date: 20130705
  Transmission Date: 20140515
  Serious: Yes (Other)
  Sender: FDA-Public Use
  Company Number: AUR-APL-2012-02251

PATIENT
  Age: 69 Year
  Sex: Male

DRUGS (4)
  1. AMOXICILLIN [Suspect]
     Indication: HELICOBACTER GASTRITIS
     Dates: start: 201205
  2. CLARITHROMYCIN [Suspect]
     Indication: HELICOBACTER GASTRITIS
     Dates: start: 201205
  3. NEXAVAR [Suspect]
     Indication: HELICOBACTER GASTRITIS
     Dates: start: 201205
  4. OMEPRAZOLE [Concomitant]

REACTIONS (3)
  - Anaphylactic reaction [None]
  - Drug hypersensitivity [None]
  - Angioedema [None]
